FAERS Safety Report 20794776 (Version 1)
Quarter: 2022Q2

REPORT INFORMATION
  Report Type: Spontaneous
  Country: US (occurrence: None)
  Receive Date: 20220505
  Receipt Date: 20220505
  Transmission Date: 20220721
  Serious: Yes (Life-Threatening, Hospitalization)
  Sender: FDA-Public Use
  Company Number: None

PATIENT
  Age: 79 Year
  Sex: Male
  Weight: 66.1 kg

DRUGS (1)
  1. ELIQUIS [Suspect]
     Active Substance: APIXABAN
     Dosage: FREQUENCY : TWICE A DAY;?
     Route: 048

REACTIONS (6)
  - Ischaemic stroke [None]
  - Haemorrhagic stroke [None]
  - Agitation [None]
  - Mental impairment [None]
  - Facial paresis [None]
  - Dysarthria [None]

NARRATIVE: CASE EVENT DATE: 20210218
